FAERS Safety Report 8493923-8 (Version None)
Quarter: 2012Q3

REPORT INFORMATION
  Report Type: 
  Country: None (occurrence: None)
  Receive Date: 20120709
  Receipt Date: 20120702
  Transmission Date: 20120928
  Serious: Yes (Other)
  Sender: FDA-Public Use
  Company Number: PHHY2012US055687

PATIENT
  Age: 65 Year
  Sex: Male

DRUGS (3)
  1. METRONIDAZOLE [Concomitant]
     Indication: STREPTOCOCCUS TEST POSITIVE
  2. FLUCONAZOLE [Concomitant]
     Indication: STREPTOCOCCUS TEST POSITIVE
  3. VANCOMYCIN [Suspect]
     Indication: STREPTOCOCCUS TEST POSITIVE
     Route: 042

REACTIONS (11)
  - HYPOTENSION [None]
  - NEPHRITIS [None]
  - DRUG RASH WITH EOSINOPHILIA AND SYSTEMIC SYMPTOMS [None]
  - RASH PRURITIC [None]
  - PYREXIA [None]
  - TACHYCARDIA [None]
  - HEPATITIS [None]
  - EOSINOPHILIA [None]
  - RESPIRATORY FAILURE [None]
  - RASH GENERALISED [None]
  - RENAL FAILURE ACUTE [None]
